FAERS Safety Report 4897432-4 (Version None)
Quarter: 2006Q1

REPORT INFORMATION
  Report Type: 
  Country: None (occurrence: None)
  Receive Date: 20060130
  Receipt Date: 20060130
  Transmission Date: 20060701
  Serious: Yes (Other)
  Sender: FDA-Public Use
  Company Number: None

PATIENT
  Sex: Male

DRUGS (1)
  1. ENBREL [Suspect]
     Indication: RHEUMATOID ARTHRITIS
     Dosage: 25MG   TWICE WEEKLY   SQ
     Route: 058
     Dates: start: 20040202, end: 20050902

REACTIONS (1)
  - SYSTEMIC LUPUS ERYTHEMATOSUS [None]
